FAERS Safety Report 20180859 (Version 1)
Quarter: 2021Q4

REPORT INFORMATION
  Report Type: Other
  Country: US (occurrence: None)
  Receive Date: 20211214
  Receipt Date: 20211214
  Transmission Date: 20220303
  Serious: Yes (Hospitalization)
  Sender: FDA-Public Use
  Company Number: US-ROCHE-2971682

PATIENT
  Age: 54 Year
  Sex: Male
  Weight: 86.260 kg

DRUGS (4)
  1. OCREVUS [Suspect]
     Active Substance: OCRELIZUMAB
     Indication: Relapsing-remitting multiple sclerosis
     Dosage: ON DAY 1 AND 15 THEN 600 MG SUBSEQUENTLY EVERY 6 MONTHS; DOT: 30-NOV-2020 15-DEC-2020 01-JUN-2021
     Route: 042
     Dates: start: 20201201
  2. METOPROLOL [Concomitant]
     Active Substance: METOPROLOL
     Dosage: TAKING FOR SEVERAL YEARS
     Route: 048
  3. LISINOPRIL [Concomitant]
     Active Substance: LISINOPRIL
     Dosage: TAKING FOR SEVERAL YEARS ;ONGOING: YES
     Route: 048
  4. MODERNA COVID-19 VACCINE [Concomitant]
     Active Substance: ELASOMERAN

REACTIONS (2)
  - COVID-19 [Not Recovered/Not Resolved]
  - Multiple sclerosis pseudo relapse [Unknown]

NARRATIVE: CASE EVENT DATE: 20211127
